FAERS Safety Report 8936139 (Version 1)
Quarter: 2012Q4

REPORT INFORMATION
  Report Type: 
  Country: US (occurrence: US)
  Receive Date: 20121130
  Receipt Date: 20121130
  Transmission Date: 20130627
  Serious: No
  Sender: FDA-Public Use
  Company Number: US-ABBOTT-12P-163-0986018-00

PATIENT
  Age: 66 Year
  Sex: Male
  Weight: 93.98 kg

DRUGS (2)
  1. ANDROGEL [Suspect]
     Indication: BLOOD TESTOSTERONE DECREASED
     Dates: start: 201112
  2. ANDROGEL [Suspect]
     Dates: start: 201012, end: 201112

REACTIONS (1)
  - Blood testosterone decreased [Not Recovered/Not Resolved]
